FAERS Safety Report 5045304-7 (Version None)
Quarter: 2006Q3

REPORT INFORMATION
  Report Type: 
  Country: None (occurrence: None)
  Receive Date: 20060707
  Receipt Date: 20060626
  Transmission Date: 20061208
  Serious: Yes (Other)
  Sender: FDA-Public Use
  Company Number: PHHO2006BR10390

PATIENT
  Age: 55 Year
  Sex: Male
  Weight: 90 kg

DRUGS (1)
  1. FORADIL / FOR 258A / CGP 25827 [Suspect]
     Indication: LUNG DISORDER
     Dosage: 12 UG, BID
     Dates: start: 20060624, end: 20060625

REACTIONS (3)
  - DYSPNOEA [None]
  - INSOMNIA [None]
  - RESTLESSNESS [None]
